FAERS Safety Report 4933077-5 (Version None)
Quarter: 2006Q1

REPORT INFORMATION
  Report Type: 
  Country: None (occurrence: None)
  Receive Date: 20060302
  Receipt Date: 20060302
  Transmission Date: 20060701
  Serious: No
  Sender: FDA-Public Use
  Company Number: None

PATIENT
  Age: 27 Year
  Sex: Male

DRUGS (2)
  1. PROPOFOL [Suspect]
     Indication: SEDATION
     Dosage: 150 MCG IV
     Route: 042
     Dates: start: 20051101, end: 20051101
  2. FENTANYL CITRATE [Suspect]
     Indication: SEDATION
     Dosage: 100 MCG IV
     Route: 042
     Dates: start: 20051101, end: 20051101

REACTIONS (2)
  - CONVULSION [None]
  - PROCEDURAL COMPLICATION [None]
